FAERS Safety Report 7271531-4 (Version None)
Quarter: 2011Q1

REPORT INFORMATION
  Report Type: 
  Country: None (occurrence: None)
  Receive Date: 20110203
  Receipt Date: 20110121
  Transmission Date: 20110831
  Serious: No
  Sender: FDA-Public Use
  Company Number: US-B.I. PHARMACEUTICALS,INC./RIDGEFIELD-2010-BP-07466BP

PATIENT
  Sex: Female

DRUGS (8)
  1. THEOPHYLLINE [Concomitant]
     Indication: CHRONIC OBSTRUCTIVE PULMONARY DISEASE
  2. EFFEXOR [Concomitant]
     Indication: DEPRESSION
  3. OXYGEN [Concomitant]
     Indication: CHRONIC OBSTRUCTIVE PULMONARY DISEASE
  4. SPIRIVA [Suspect]
     Indication: CHRONIC OBSTRUCTIVE PULMONARY DISEASE
     Dosage: 18 MCG
     Route: 055
     Dates: start: 20040101
  5. SERTRALINE [Concomitant]
     Indication: DEPRESSION
  6. SERTRALINE [Concomitant]
     Indication: ANXIETY
  7. ATIVAN [Concomitant]
     Indication: ANXIETY
  8. EFFEXOR [Concomitant]
     Indication: ANXIETY

REACTIONS (7)
  - URTICARIA [None]
  - DRY MOUTH [None]
  - COUGH [None]
  - LARYNGITIS [None]
  - DRY THROAT [None]
  - DYSPNOEA [None]
  - LOOSE TOOTH [None]
